FAERS Safety Report 24767618 (Version 1)
Quarter: 2024Q4

REPORT INFORMATION
  Report Type: Spontaneous
  Country: LK (occurrence: None)
  Receive Date: 20241222
  Receipt Date: 20241222
  Transmission Date: 20250115
  Serious: Yes (Disabling, Other)
  Sender: Public
  Company Number: None

PATIENT
  Age: 23 Year
  Sex: Male
  Weight: 75 kg

DRUGS (3)
  1. VENLAFAXINE [Suspect]
     Active Substance: VENLAFAXINE HYDROCHLORIDE
     Indication: Generalised anxiety disorder
     Dosage: OTHER QUANTITY : 01 TABLET(S);?FREQUENCY : DAILY;?
     Route: 048
     Dates: start: 20220601, end: 20241010
  2. CYPROHEPTADINE [Concomitant]
     Active Substance: CYPROHEPTADINE
  3. L -tyrosine [Concomitant]

REACTIONS (5)
  - Male orgasmic disorder [None]
  - Sexual dysfunction [None]
  - Genital hypoaesthesia [None]
  - Emotional disorder [None]
  - Post-traumatic stress disorder [None]

NARRATIVE: CASE EVENT DATE: 20241010
